FAERS Safety Report 17478548 (Version 12)
Quarter: 2020Q4

REPORT INFORMATION
  Report Type: Spontaneous
  Country: CA (occurrence: CA)
  Receive Date: 20200228
  Receipt Date: 20201110
  Transmission Date: 20210113
  Serious: Yes (Other)
  Sender: FDA-Public Use
  Company Number: CA-PFIZER INC-2019445960

PATIENT
  Age: 61 Year
  Sex: Male

DRUGS (8)
  1. XELJANZ [Suspect]
     Active Substance: TOFACITINIB CITRATE
     Indication: COLITIS ULCERATIVE
     Dosage: 10 MG, 2X/DAY
     Route: 048
     Dates: start: 20191005, end: 2019
  2. CORTISONE [Concomitant]
     Active Substance: CORTISONE
     Dosage: UNK
     Route: 065
  3. XELJANZ [Suspect]
     Active Substance: TOFACITINIB CITRATE
     Dosage: 10 MG, 2X/DAY
     Route: 048
     Dates: end: 2020
  4. XELJANZ [Suspect]
     Active Substance: TOFACITINIB CITRATE
     Dosage: 5 MG, 2X/DAY
     Route: 048
     Dates: start: 2019
  5. SHINGRIX [Concomitant]
     Active Substance: RECOMBINANT VARICELLA ZOSTER VIRUS (VZV) GLYCOPROTEIN E
     Indication: IMMUNISATION
     Dosage: UNK
     Dates: start: 20191022
  6. XELJANZ [Suspect]
     Active Substance: TOFACITINIB CITRATE
     Dosage: 10 MG, 2X/DAY (5MG (2 TABLETS))
     Route: 048
     Dates: start: 20201001
  7. MEZAVANT [Concomitant]
     Active Substance: MESALAMINE
     Dosage: UNK
     Route: 065
  8. XELJANZ [Suspect]
     Active Substance: TOFACITINIB CITRATE
     Dosage: UNK UNK, 2X/DAY (1/2 TABLET OF 10 MG, 2X/DAY)
     Route: 048
     Dates: start: 2020, end: 20200930

REACTIONS (16)
  - Abdominal pain [Recovering/Resolving]
  - Headache [Recovered/Resolved]
  - Acne [Recovered/Resolved]
  - Haematochezia [Recovered/Resolved]
  - Abnormal faeces [Unknown]
  - Haemorrhage [Recovering/Resolving]
  - Palpitations [Unknown]
  - Wrong technique in product usage process [Unknown]
  - Hypertension [Unknown]
  - Musculoskeletal chest pain [Recovering/Resolving]
  - Tinnitus [Unknown]
  - Faeces discoloured [Unknown]
  - Back pain [Unknown]
  - Drug ineffective [Unknown]
  - Pain [Recovering/Resolving]
  - Defaecation urgency [Unknown]

NARRATIVE: CASE EVENT DATE: 202006
